FAERS Safety Report 5265667-7 (Version None)
Quarter: 2007Q1

REPORT INFORMATION
  Report Type: 
  Country: None (occurrence: None)
  Receive Date: 20061213
  Receipt Date: 20060210
  Transmission Date: 20070707
  Serious: Yes (Other)
  Sender: FDA-Public Use
  Company Number: 2004UW01027

PATIENT
  Age: 82 Year
  Sex: Female
  Weight: 76.2 kg

DRUGS (5)
  1. IRESSA [Suspect]
     Indication: LUNG NEOPLASM MALIGNANT
     Dosage: 250 MG QD PO
     Route: 048
     Dates: start: 20031001, end: 20060101
  2. HYDROCHLOROTHIAZIDE [Concomitant]
  3. NORVASC [Concomitant]
  4. POTASSIUM ACETATE [Concomitant]
  5. INHALER [Concomitant]

REACTIONS (4)
  - DYSPEPSIA [None]
  - OCULAR HYPERAEMIA [None]
  - RASH [None]
  - VISUAL ACUITY REDUCED [None]
